FAERS Safety Report 5485305-8 (Version None)
Quarter: 2007Q4

REPORT INFORMATION
  Report Type: 
  Country: None (occurrence: None)
  Receive Date: 20071010
  Receipt Date: 20071010
  Transmission Date: 20080405
  Serious: No
  Sender: FDA-Public Use
  Company Number: None

PATIENT
  Age: 64 Year
  Sex: Male

DRUGS (2)
  1. LISINOPRIL [Suspect]
     Indication: HYPERTENSION
     Dosage: 5MG EVERY DAY PO
     Route: 048
     Dates: start: 20070829, end: 20070918
  2. MAGNESIUM OXIDE [Suspect]
     Dosage: 420MG EVERY DAY PO
     Route: 048
     Dates: start: 20070829, end: 20070918

REACTIONS (2)
  - BLOOD POTASSIUM DECREASED [None]
  - HYPERKALAEMIA [None]
